FAERS Safety Report 5855612-5 (Version None)
Quarter: 2008Q3

REPORT INFORMATION
  Report Type: 
  Country: None (occurrence: None)
  Receive Date: 20080821
  Receipt Date: 20080805
  Transmission Date: 20090109
  Serious: Yes (Other)
  Sender: FDA-Public Use
  Company Number: 2008S1013977

PATIENT
  Age: 33 Year
  Sex: Male

DRUGS (1)
  1. PHENYTEK [Suspect]
     Indication: EPILEPSY
     Dosage: 200 MG; TWICE A DAY; ORAL
     Route: 048
     Dates: start: 20080201

REACTIONS (3)
  - CONVULSION [None]
  - DRUG INEFFECTIVE [None]
  - DRUG LEVEL BELOW THERAPEUTIC [None]
